FAERS Safety Report 6380131-X (Version None)
Quarter: 2009Q3

REPORT INFORMATION
  Report Type: 
  Country: None (occurrence: None)
  Receive Date: 20090929
  Receipt Date: 20090923
  Transmission Date: 20100115
  Serious: Yes (Death, Hospitalization)
  Sender: FDA-Public Use
  Company Number: US-CELGENEUS-163-21880-09071021

PATIENT
  Sex: Male

DRUGS (3)
  1. REVLIMID [Suspect]
     Indication: MULTIPLE MYELOMA
     Route: 048
     Dates: start: 20080519, end: 20090601
  2. REVLIMID [Suspect]
     Route: 048
     Dates: start: 20080421, end: 20080501
  3. DEXAMETHASONE 4MG TAB [Concomitant]
     Indication: DRUG USE FOR UNKNOWN INDICATION
     Route: 065
     Dates: start: 20081201, end: 20090611

REACTIONS (1)
  - RESPIRATORY DISTRESS [None]
